FAERS Safety Report 9171202 (Version 1)
Quarter: 2013Q1

REPORT INFORMATION
  Report Type: Spontaneous
  Country: NL (occurrence: NL)
  Receive Date: 20130319
  Receipt Date: 20130319
  Transmission Date: 20140127
  Serious: Yes (Other)
  Sender: FDA-Public Use
  Company Number: PHHY2013NL025952

PATIENT
  Sex: Female

DRUGS (1)
  1. TOBI [Suspect]
     Indication: PULMONARY VASCULITIS
     Dosage: UNK UKN, UNK

REACTIONS (3)
  - Blood disorder [Unknown]
  - Dyspnoea [Unknown]
  - Pulmonary function test decreased [Unknown]
